FAERS Safety Report 25192311 (Version 1)
Quarter: 2025Q2

REPORT INFORMATION
  Report Type: Spontaneous
  Country: US (occurrence: None)
  Receive Date: 20250413
  Receipt Date: 20250413
  Transmission Date: 20250716
  Serious: Yes (Life-Threatening, Hospitalization)
  Sender: FDA-CTU
  Company Number: None

PATIENT
  Age: 64 Year
  Sex: Male
  Weight: 74.84 kg

DRUGS (8)
  1. BUPRENORPHINE [Suspect]
     Active Substance: BUPRENORPHINE
     Dosage: FREQUENCY : DAILY;?
     Route: 048
     Dates: start: 20250411, end: 20250411
  2. VITAMIN C [Concomitant]
     Active Substance: ASCORBIC ACID
  3. Super B-Complex [Concomitant]
  4. Tumeric + Ginger 2400mg [Concomitant]
  5. CoQ10 100mg [Concomitant]
  6. REVLIMID [Concomitant]
     Active Substance: LENALIDOMIDE
  7. METOPROLOL SUCCINATE [Concomitant]
     Active Substance: METOPROLOL SUCCINATE
  8. AMLODIPINE [Concomitant]
     Active Substance: AMLODIPINE BESYLATE

REACTIONS (6)
  - Feeling abnormal [None]
  - Vomiting [None]
  - Retching [None]
  - Dysstasia [None]
  - Accidental overdose [None]
  - Vertigo [None]

NARRATIVE: CASE EVENT DATE: 20250411
